FAERS Safety Report 9742442 (Version 2)
Quarter: 2013Q4

REPORT INFORMATION
  Report Type: Spontaneous
  Country: PL (occurrence: PL)
  Receive Date: 20131210
  Receipt Date: 20131216
  Transmission Date: 20140711
  Serious: Yes (Hospitalization)
  Sender: FDA-Public Use
  Company Number: PL-ELI_LILLY_AND_COMPANY-PL201312002126

PATIENT
  Age: 11 Year
  Sex: Female
  Weight: 60.5 kg

DRUGS (7)
  1. SOMATROPIN [Suspect]
     Indication: GROWTH RETARDATION
     Dosage: 0.03 MG/KG, UNKNOWN
  2. EUTHYROX [Concomitant]
     Indication: HORMONE REPLACEMENT THERAPY
     Dosage: 75 UG, QD
     Route: 065
  3. HYDROCORTISONE [Concomitant]
     Indication: HORMONE REPLACEMENT THERAPY
     Dosage: 10 MG, QD
  4. HYDROCORTISONE [Concomitant]
     Dosage: 15 MG, QD
  5. MINIRIN [Concomitant]
     Indication: HORMONE REPLACEMENT THERAPY
     Dosage: 0.05 MG, QD
     Route: 065
  6. MINIRIN [Concomitant]
     Dosage: 0.075 MG, QD
  7. LAMITRIN [Concomitant]
     Indication: EPILEPSY
     Route: 065

REACTIONS (4)
  - Tonsillar hypertrophy [Recovered/Resolved]
  - Adenoidal hypertrophy [Recovered/Resolved]
  - Sleep apnoea syndrome [Recovered/Resolved]
  - Somnolence [Recovered/Resolved]
